FAERS Safety Report 12392512 (Version 2)
Quarter: 2020Q1

REPORT INFORMATION
  Report Type: Report from Study
  Country: FR (occurrence: FR)
  Receive Date: 20160523
  Receipt Date: 20200204
  Transmission Date: 20200409
  Serious: Yes (Other)
  Sender: FDA-Public Use
  Company Number: PHHO2016FR007076

PATIENT
  Age: 52 Year
  Sex: Female
  Weight: 40 kg

DRUGS (2)
  1. SORAFENIB [Suspect]
     Active Substance: SORAFENIB
     Indication: CHOLANGIOCARCINOMA
     Dosage: 400 MG, QD
     Route: 048
     Dates: start: 20150722, end: 20151229
  2. EVEROLIMUS. [Suspect]
     Active Substance: EVEROLIMUS
     Indication: CHOLANGIOCARCINOMA
     Dosage: 5 MG, QD
     Route: 048
     Dates: start: 20150729, end: 20160105

REACTIONS (3)
  - Drug intolerance [Recovered/Resolved]
  - General physical health deterioration [Recovered/Resolved]
  - Gastrointestinal disorder [Recovered/Resolved]

NARRATIVE: CASE EVENT DATE: 20160105
